FAERS Safety Report 25537109 (Version 1)
Quarter: 2025Q3

REPORT INFORMATION
  Report Type: Spontaneous
  Country: US (occurrence: US)
  Receive Date: 20250710
  Receipt Date: 20250710
  Transmission Date: 20251020
  Serious: No
  Sender: CIPLA
  Company Number: US-CIPLA LTD.-2025US08258

PATIENT

DRUGS (14)
  1. LENALIDOMIDE [Suspect]
     Active Substance: LENALIDOMIDE
     Indication: Plasma cell myeloma
     Dosage: 5 MILLIGRAM, QD 21 DAYS ON AND 7 DAYS OFF OF EACH 28 DAYS (STRENGTH 5 MG)
     Route: 048
     Dates: start: 20250307
  2. LENALIDOMIDE [Suspect]
     Active Substance: LENALIDOMIDE
     Dosage: 25 MILLIGRAM, QD, 21 DAYS ON AND 7 DAYS OFF OF EACH 28 DAYS (STRENGTH 25 MG)
     Route: 048
     Dates: start: 20250313
  3. LENALIDOMIDE [Suspect]
     Active Substance: LENALIDOMIDE
     Dosage: 5 MILLIGRAM, QD 21 DAYS ON AND 7 DAYS OFF OF EACH 28 DAYS (STRENGTH 5 MG)
     Route: 048
     Dates: start: 20250328
  4. LENALIDOMIDE [Suspect]
     Active Substance: LENALIDOMIDE
     Dosage: 5 MILLIGRAM, QD 21 DAYS ON AND 7 DAYS OFF OF EACH 28 DAYS (STRENGTH 5 MG)
     Route: 048
     Dates: start: 20250331
  5. LENALIDOMIDE [Suspect]
     Active Substance: LENALIDOMIDE
     Dosage: 5 MILLIGRAM, QD 21 DAYS ON AND 7 DAYS OFF OF EACH 28 DAYS (STRENGTH 5 MG)
     Route: 048
     Dates: start: 20250424
  6. LENALIDOMIDE [Suspect]
     Active Substance: LENALIDOMIDE
     Dosage: 5 MILLIGRAM, QD 21 DAYS ON AND 7 DAYS OFF OF EACH 28 DAYS (STRENGTH 5 MG)
     Route: 048
     Dates: start: 20250523
  7. LENALIDOMIDE [Suspect]
     Active Substance: LENALIDOMIDE
     Dosage: 5 MILLIGRAM, QD 21 DAYS ON AND 7 DAYS OFF OF EACH 28 DAYS (STRENGTH 5 MG)
     Route: 048
     Dates: start: 20250527
  8. LENALIDOMIDE [Suspect]
     Active Substance: LENALIDOMIDE
     Dosage: 5 MILLIGRAM, QD 21 DAYS ON AND 7 DAYS OFF OF EACH 28 DAYS (STRENGTH 5 MG)
     Route: 048
     Dates: start: 20250602
  9. LENALIDOMIDE [Suspect]
     Active Substance: LENALIDOMIDE
     Dosage: 5 MILLIGRAM, QD 21 DAYS ON AND 7 DAYS OFF OF EACH 28 DAYS (STRENGTH 5 MG)
     Route: 048
     Dates: start: 20250624
  10. DEXAMETHASONE [Concomitant]
     Active Substance: DEXAMETHASONE
     Indication: Product used for unknown indication
     Route: 048
  11. DEXAMETHASONE [Concomitant]
     Active Substance: DEXAMETHASONE
     Dosage: 10 MILLIGRAM, QWK( (STRENGTH:2 MG, 5 TABLETS(10 MG TOTAL BY MOUTH)
     Route: 048
  12. OMEPRAZOLE [Concomitant]
     Active Substance: OMEPRAZOLE
     Indication: Product used for unknown indication
     Route: 065
  13. DICYCLOMINE HYDROCHLORIDE [Concomitant]
     Active Substance: DICYCLOMINE HYDROCHLORIDE
     Indication: Product used for unknown indication
     Route: 065
  14. HEMADY [Concomitant]
     Active Substance: DEXAMETHASONE
     Indication: Product used for unknown indication
     Route: 065

REACTIONS (1)
  - Weight decreased [Recovering/Resolving]

NARRATIVE: CASE EVENT DATE: 20250307
